FAERS Safety Report 12648252 (Version 2)
Quarter: 2016Q3

REPORT INFORMATION
  Report Type: Spontaneous
  Country: HU (occurrence: HU)
  Receive Date: 20160812
  Receipt Date: 20160826
  Transmission Date: 20161109
  Serious: Yes (Other)
  Sender: FDA-Public Use
  Company Number: HU-IGSA-GTI004490

PATIENT
  Age: 25 Year
  Sex: Female

DRUGS (2)
  1. IGIV (MANUFACTURER UNKNOWN) [Suspect]
     Active Substance: HUMAN IMMUNOGLOBULIN G
     Indication: STIFF PERSON SYNDROME
     Route: 042
  2. CORTICOSTEROIDS [Concomitant]
     Active Substance: CORTICOSTEROID NOS
     Indication: STIFF PERSON SYNDROME

REACTIONS (3)
  - Sepsis [Recovered/Resolved]
  - Leukopenia [Recovered/Resolved]
  - Disseminated intravascular coagulation [Recovered/Resolved]
